FAERS Safety Report 21389862 (Version 15)
Quarter: 2023Q1

REPORT INFORMATION
  Report Type: Report from Study
  Country: ES (occurrence: ES)
  Receive Date: 20220929
  Receipt Date: 20230118
  Transmission Date: 20230418
  Serious: Yes (Death, Life-Threatening, Hospitalization, Other)
  Sender: FDA-Public Use
  Company Number: ES-NOVARTISPH-NVSC2022ES216631

PATIENT
  Age: 67 Year
  Sex: Male
  Weight: 127.5 kg

DRUGS (4)
  1. ASCIMINIB [Suspect]
     Active Substance: ASCIMINIB
     Indication: Chronic myeloid leukaemia
     Dosage: 80 MG, QD
     Route: 048
     Dates: start: 20220407, end: 20220922
  2. ALLOPURINOL [Concomitant]
     Active Substance: ALLOPURINOL
     Indication: Hyperuricaemia
     Dosage: UNK
     Route: 065
     Dates: start: 20211124
  3. OMEPRAZOLE [Concomitant]
     Active Substance: OMEPRAZOLE
     Indication: Gastrointestinal disorder prophylaxis
     Dosage: UNK
     Route: 065
     Dates: start: 20220307, end: 20220922
  4. SIMVASTATIN [Concomitant]
     Active Substance: SIMVASTATIN
     Indication: General physical condition
     Dosage: UNK
     Route: 065
     Dates: start: 20220407, end: 20220922

REACTIONS (4)
  - Metastatic bronchial carcinoma [Fatal]
  - Metastases to liver [Fatal]
  - Budd-Chiari syndrome [Not Recovered/Not Resolved]
  - Hepatotoxicity [Recovered/Resolved]

NARRATIVE: CASE EVENT DATE: 20220922
